FAERS Safety Report 13514882 (Version 4)
Quarter: 2018Q4

REPORT INFORMATION
  Report Type: Report from Study
  Country: US (occurrence: US)
  Receive Date: 20170504
  Receipt Date: 20181127
  Transmission Date: 20190204
  Serious: No
  Sender: FDA-Public Use
  Company Number: US-THERATECHNOLOGIES, INC.-TH-2017-00222

PATIENT

DRUGS (4)
  1. EGRIFTA [Suspect]
     Active Substance: TESAMORELIN
     Indication: HIV INFECTION
     Dosage: 2 MG MILLIGRAM(S), DAILY DOSE
     Route: 058
     Dates: start: 20170411
  2. EGRIFTA [Suspect]
     Active Substance: TESAMORELIN
     Indication: LIPODYSTROPHY ACQUIRED
  3. NORVIR [Concomitant]
     Active Substance: RITONAVIR
     Dosage: 100 MG MILLIGRAM(S), UNK
     Dates: start: 20160304
  4. TRUVADA [Concomitant]
     Active Substance: EMTRICITABINE\TENOFOVIR DISOPROXIL FUMARATE
     Dosage: 200-300
     Dates: start: 20160304

REACTIONS (11)
  - Product dose omission [Not Recovered/Not Resolved]
  - Insomnia [Not Recovered/Not Resolved]
  - Injection site swelling [Unknown]
  - Depression [Not Recovered/Not Resolved]
  - Dyskinesia [Unknown]
  - Myalgia [Recovered/Resolved]
  - Tremor [Unknown]
  - Pain [Not Recovered/Not Resolved]
  - Nervous system disorder [Unknown]
  - Injection site discomfort [Unknown]
  - Decreased appetite [Not Recovered/Not Resolved]

NARRATIVE: CASE EVENT DATE: 201704
